FAERS Safety Report 11639691 (Version 1)
Quarter: 2015Q4

REPORT INFORMATION
  Report Type: Spontaneous
  Country: US (occurrence: None)
  Receive Date: 20151016
  Receipt Date: 20151016
  Transmission Date: 20160304
  Serious: Yes (Death, Life-Threatening, Hospitalization, Disabling, Other)
  Sender: FDA-Public Use
  Company Number: None

PATIENT
  Age: 80 Year
  Sex: Female
  Weight: 90.72 kg

DRUGS (1)
  1. ELIQUIS [Suspect]
     Active Substance: APIXABAN
     Indication: PRODUCT USED FOR UNKNOWN INDICATION
     Dates: start: 20150429, end: 20150608

REACTIONS (6)
  - Dizziness [None]
  - Atrial fibrillation [None]
  - Malaise [None]
  - Cerebrovascular accident [None]
  - Disease complication [None]
  - Dementia [None]

NARRATIVE: CASE EVENT DATE: 20150608
